FAERS Safety Report 7270837-2 (Version None)
Quarter: 2011Q1

REPORT INFORMATION
  Report Type: 
  Country: None (occurrence: None)
  Receive Date: 20110125
  Receipt Date: 20110125
  Transmission Date: 20110831
  Serious: Yes (Life-Threatening, Hospitalization)
  Sender: FDA-Public Use
  Company Number: None

PATIENT
  Age: 53 Year
  Sex: Male
  Weight: 117.9352 kg

DRUGS (2)
  1. LEVAQUIN [Suspect]
     Indication: RESPIRATORY TRACT INFECTION
     Dosage: 1 TAB 1 A DAY PO
     Route: 048
     Dates: start: 20110111, end: 20110114
  2. LEVAQUIN [Suspect]
     Indication: SINUSITIS
     Dosage: 1 TAB 1 A DAY PO
     Route: 048
     Dates: start: 20110111, end: 20110114

REACTIONS (10)
  - PRURITUS [None]
  - HALLUCINATION [None]
  - HEART RATE INCREASED [None]
  - INSOMNIA [None]
  - ARTHRALGIA [None]
  - NAUSEA [None]
  - ANXIETY [None]
  - MYALGIA [None]
  - SKIN WARM [None]
  - CONFUSIONAL STATE [None]
